FAERS Safety Report 25654032 (Version 1)
Quarter: 2025Q3

REPORT INFORMATION
  Report Type: Spontaneous
  Country: US (occurrence: US)
  Receive Date: 20250807
  Receipt Date: 20250807
  Transmission Date: 20251021
  Serious: Yes (Hospitalization)
  Sender: MYLAN
  Company Number: US-MYLANLABS-2025M1066319

PATIENT
  Age: 66 Year
  Sex: Male

DRUGS (4)
  1. DAPSONE [Suspect]
     Active Substance: DAPSONE
     Indication: Dermatitis
  2. DAPSONE [Suspect]
     Active Substance: DAPSONE
     Route: 065
  3. DAPSONE [Suspect]
     Active Substance: DAPSONE
     Route: 065
  4. DAPSONE [Suspect]
     Active Substance: DAPSONE

REACTIONS (3)
  - Methaemoglobinaemia [Recovering/Resolving]
  - Hypoxia [Recovering/Resolving]
  - Off label use [Unknown]
